FAERS Safety Report 6137255-1 (Version None)
Quarter: 2009Q1

REPORT INFORMATION
  Report Type: 
  Country: None (occurrence: None)
  Receive Date: 20090326
  Receipt Date: 20090326
  Transmission Date: 20090719
  Serious: Yes (Hospitalization)
  Sender: FDA-Public Use
  Company Number: None

PATIENT
  Age: 40 Year
  Sex: Female
  Weight: 70.3075 kg

DRUGS (1)
  1. YASMIN [Suspect]
     Indication: CONTRACEPTION
     Dosage: ONE DAILY PO
     Route: 048
     Dates: start: 20081103, end: 20090128

REACTIONS (2)
  - BLOOD POTASSIUM INCREASED [None]
  - NEPHROLITHIASIS [None]
